FAERS Safety Report 8948008 (Version 1)
Quarter: 2012Q4

REPORT INFORMATION
  Report Type: Spontaneous
  Country: US (occurrence: None)
  Receive Date: 20121203
  Receipt Date: 20121203
  Transmission Date: 20130627
  Serious: Yes (Hospitalization)
  Sender: FDA-Public Use
  Company Number: None

PATIENT
  Age: 86 Year
  Sex: Male

DRUGS (1)
  1. STIVARGA [Suspect]
     Indication: COLON CANCER
     Route: 048
     Dates: start: 20121109, end: 20121120

REACTIONS (7)
  - Convulsion [None]
  - Dry mouth [None]
  - Gastrooesophageal reflux disease [None]
  - Fatigue [None]
  - Abnormal dreams [None]
  - Dementia [None]
  - Thinking abnormal [None]
